FAERS Safety Report 23744440 (Version 3)
Quarter: 2024Q4

REPORT INFORMATION
  Report Type: Report from Study
  Country: PE (occurrence: PE)
  Receive Date: 20240415
  Receipt Date: 20241001
  Transmission Date: 20250115
  Serious: Yes (Other)
  Sender: NOVARTIS
  Company Number: PE-002147023-NVSC2019PE005417

PATIENT
  Age: 47 Year
  Sex: Female
  Weight: 69 kg

DRUGS (6)
  1. KISQALI [Suspect]
     Active Substance: RIBOCICLIB
     Indication: Breast cancer metastatic
     Dosage: 200 MG, TID
     Route: 048
     Dates: start: 20190811, end: 20210617
  2. KISQALI [Suspect]
     Active Substance: RIBOCICLIB
     Indication: Breast cancer
     Dosage: 600 MG, QD (FROM 13 JUL, YEAR UNSPECIFIED)
     Route: 048
  3. KISQALI [Suspect]
     Active Substance: RIBOCICLIB
     Dosage: 600 MG, QD
     Route: 048
     Dates: end: 20231120
  4. KISQALI [Suspect]
     Active Substance: RIBOCICLIB
     Dosage: 600 MG, QD
     Route: 048
  5. LYRICA [Concomitant]
     Active Substance: PREGABALIN
     Indication: Neuropathy peripheral
     Dosage: UNK, QD
     Route: 048
     Dates: start: 201711, end: 201909
  6. LYRICA [Concomitant]
     Active Substance: PREGABALIN
     Dosage: UNK, QD
     Route: 048

REACTIONS (29)
  - Breast cancer metastatic [Unknown]
  - Breast cancer [Unknown]
  - Malignant neoplasm progression [Unknown]
  - Neutropenia [Unknown]
  - Hypoaesthesia [Unknown]
  - Pain [Unknown]
  - Decreased immune responsiveness [Unknown]
  - COVID-19 [Recovered/Resolved with Sequelae]
  - Feeling abnormal [Unknown]
  - Anosmia [Recovering/Resolving]
  - Secretion discharge [Unknown]
  - Somnolence [Recovered/Resolved]
  - Ageusia [Unknown]
  - Eating disorder [Unknown]
  - Bronchitis [Unknown]
  - COVID-19 [Unknown]
  - Oropharyngeal pain [Unknown]
  - Productive cough [Unknown]
  - Abdominal pain upper [Unknown]
  - Haemoglobin decreased [Unknown]
  - Nausea [Unknown]
  - Anaemia [Not Recovered/Not Resolved]
  - Dyspepsia [Recovered/Resolved]
  - Pyrexia [Unknown]
  - Asthenia [Unknown]
  - Headache [Unknown]
  - Vomiting [Unknown]
  - Off label use [Unknown]
  - Musculoskeletal discomfort [Unknown]

NARRATIVE: CASE EVENT DATE: 20190901
